FAERS Safety Report 4903847-8 (Version None)
Quarter: 2006Q1

REPORT INFORMATION
  Report Type: 
  Country: None (occurrence: None)
  Receive Date: 20060208
  Receipt Date: 20050714
  Transmission Date: 20060701
  Serious: No
  Sender: FDA-Public Use
  Company Number: US-GLAXOSMITHKLINE-A0566233A

PATIENT
  Age: 80 Year
  Sex: Female

DRUGS (7)
  1. PAXIL [Suspect]
     Indication: DEPRESSION
     Dosage: 10MG PER DAY
     Route: 048
  2. K-DUR 10 [Concomitant]
  3. MAXZIDE [Concomitant]
  4. TIAZAC [Concomitant]
  5. LIPITOR [Concomitant]
  6. COUMADIN [Concomitant]
  7. CENTRUM SILVER [Concomitant]

REACTIONS (1)
  - DEPRESSION [None]
